FAERS Safety Report 6985105-3 (Version None)
Quarter: 2010Q3

REPORT INFORMATION
  Report Type: 
  Country: None (occurrence: None)
  Receive Date: 20100915
  Receipt Date: 20100910
  Transmission Date: 20110219
  Serious: Yes (Death, Hospitalization)
  Sender: FDA-Public Use
  Company Number: PHHY2010IE52427

PATIENT
  Sex: Female

DRUGS (3)
  1. DIOVAN HCT [Suspect]
     Indication: BLOOD PRESSURE INCREASED
     Dosage: 160/12.5 UNK, UNK
  2. IDEOS [Concomitant]
     Indication: VITAMIN D
  3. ONE-ALPHA [Concomitant]

REACTIONS (8)
  - ASTHENIA [None]
  - BLOOD CHLORIDE DECREASED [None]
  - DEATH [None]
  - DECREASED APPETITE [None]
  - HYPONATRAEMIA [None]
  - LETHARGY [None]
  - NEUTROPHIL COUNT INCREASED [None]
  - WHITE BLOOD CELL COUNT INCREASED [None]
